FAERS Safety Report 12219398 (Version 2)
Quarter: 2016Q1

REPORT INFORMATION
  Report Type: Other
  Country: KR (occurrence: KR)
  Receive Date: 20160329
  Receipt Date: 20160331
  Transmission Date: 20160526
  Serious: Yes (Hospitalization)
  Sender: FDA-Public Use
  Company Number: KR-DEP_13851_2016

PATIENT
  Age: 25 Year
  Sex: Male
  Weight: 59.8 kg

DRUGS (22)
  1. VECURONIUM BROMIDE. [Concomitant]
     Active Substance: VECURONIUM BROMIDE
     Indication: MAINTENANCE OF ANAESTHESIA
     Dosage: INTERMITTENT, DF
  2. FENTANYL. [Suspect]
     Active Substance: FENTANYL
     Dosage: 50 MCG, DURING SUTURING OF THE SURGICAL SITE
  3. PYRIDOSTIGMINE [Concomitant]
     Active Substance: PYRIDOSTIGMINE
  4. HARTMANN SOLUTION [Concomitant]
     Indication: FLUID REPLACEMENT
  5. GLYCOPYRROLATE. [Concomitant]
     Active Substance: GLYCOPYRROLATE
     Indication: HYPOTONIA
  6. GLYCOPYRROLATE. [Concomitant]
     Active Substance: GLYCOPYRROLATE
     Indication: PREOPERATIVE CARE
     Dosage: DF
  7. FENTANYL. [Suspect]
     Active Substance: FENTANYL
     Dosage: 50 MCG, ADMINISTERED WITHIN 3 TO 4 SECONDS
  8. MEPERIDINE [Concomitant]
     Active Substance: MEPERIDINE
  9. PYRIDOSTIGMINE [Concomitant]
     Active Substance: PYRIDOSTIGMINE
     Indication: HYPOTONIA
  10. MEPERIDINE [Concomitant]
     Active Substance: MEPERIDINE
     Indication: PAIN
     Dosage: DF, OVER A LONG TERM
  11. MEPERIDINE [Concomitant]
     Active Substance: MEPERIDINE
     Indication: DYSPHONIA
  12. HYDROXYETHYLSTARCH [Concomitant]
     Active Substance: HETASTARCH
     Indication: HAEMORRHAGE
     Dosage: 6%, 1500 ML
  13. GLYCOPYRROLATE. [Concomitant]
     Active Substance: GLYCOPYRROLATE
     Dosage: DF
  14. SEVOFLURANE. [Concomitant]
     Active Substance: SEVOFLURANE
     Indication: MAINTENANCE OF ANAESTHESIA
     Dosage: DF
  15. FENTANYL. [Suspect]
     Active Substance: FENTANYL
     Indication: ANALGESIC THERAPY
     Dosage: AUTOMATIC CONTROL ANALGESIC DEVICE, FENTANYL 2,000 MCG, KETOROLAC 120 MG, NORMAL SALINE MIXED SOLN
  16. FENTANYL. [Suspect]
     Active Substance: FENTANYL
     Dosage: AUTOMATIC CONTROL ANALGESIC DEVICE, FENTANYL 2,000 MCG, KETOROLAC 120 MG, NORMAL SALINE MIXED SOLN
  17. KETOROLAC [Concomitant]
     Active Substance: KETOROLAC\KETOROLAC TROMETHAMINE
     Indication: ANALGESIC THERAPY
  18. MIDAZOLAM [Concomitant]
     Active Substance: MIDAZOLAM\MIDAZOLAM HYDROCHLORIDE
     Indication: PREOPERATIVE CARE
     Dosage: DF
     Route: 030
  19. TRAZODONE [Suspect]
     Active Substance: TRAZODONE HYDROCHLORIDE
     Indication: SLEEP DISORDER
     Dosage: DF
  20. FENTANYL. [Suspect]
     Active Substance: FENTANYL
     Indication: PROCEDURAL PAIN
     Dosage: 3 HRS AND 30 MIN INTO OPERATION, LOW DOSE, 50 MG
  21. OXYGEN. [Concomitant]
     Active Substance: OXYGEN
     Indication: MAINTENANCE OF ANAESTHESIA
     Dosage: DF
  22. HALOPERIDOL. [Suspect]
     Active Substance: HALOPERIDOL
     Indication: DEPRESSION
     Dosage: DF

REACTIONS (3)
  - Pulmonary oedema [Recovered/Resolved]
  - Hypoxia [Recovered/Resolved]
  - Muscle rigidity [Recovered/Resolved]
